FAERS Safety Report 8619853-6 (Version None)
Quarter: 2012Q3

REPORT INFORMATION
  Report Type: 
  Country: None (occurrence: None)
  Receive Date: 20120824
  Receipt Date: 20120802
  Transmission Date: 20120928
  Serious: No
  Sender: FDA-Public Use
  Company Number: GB-009507513-2012SP032385

PATIENT

DRUGS (12)
  1. OLANZAPINE [Concomitant]
     Dosage: 5 MG, BID
  2. SIMVASTATIN [Concomitant]
     Dosage: UNK UNK, UNKNOWN
  3. METFORMIN HCL [Concomitant]
     Dosage: UNK UNK, UNKNOWN
  4. LAMOTRIGINE [Concomitant]
     Dosage: UNK UNK, UNKNOWN
  5. BISOPROLOL FUMARATE [Concomitant]
     Dosage: UNK UNK, UNKNOWN
  6. GLICLAZIDE [Concomitant]
     Dosage: UNK UNK, UNKNOWN
  7. REBOXETINE [Concomitant]
     Dosage: UNK UNK, UNKNOWN
     Route: 065
  8. SYCREST [Suspect]
     Indication: BIPOLAR DISORDER
     Dosage: 5 MG, BID
     Route: 060
     Dates: start: 20120602, end: 20120731
  9. PERINDOPRIL ERBUMINE [Concomitant]
     Dosage: UNK UNK, UNKNOWN
  10. ASPIRIN [Concomitant]
     Dosage: UNK UNK, UNKNOWN
  11. FUROSEMIDE [Concomitant]
     Dosage: UNK UNK, UNKNOWN
  12. SPIRONOLACTONE [Concomitant]
     Dosage: UNK UNK, UNKNOWN

REACTIONS (5)
  - DEPRESSION [None]
  - SOMNOLENCE [None]
  - PARAESTHESIA ORAL [None]
  - DYSPNOEA [None]
  - BLOOD GLUCOSE INCREASED [None]
